FAERS Safety Report 12994040 (Version 2)
Quarter: 2017Q1

REPORT INFORMATION
  Report Type: Spontaneous
  Country: US (occurrence: US)
  Receive Date: 20161202
  Receipt Date: 20170109
  Transmission Date: 20170428
  Serious: No
  Sender: FDA-Public Use
  Company Number: US-PFIZER INC-2016547802

PATIENT
  Age: 89 Year
  Sex: Female
  Weight: 80 kg

DRUGS (11)
  1. LISINOPRIL. [Concomitant]
     Active Substance: LISINOPRIL
     Dosage: 5 MG, DAILY
     Route: 048
  2. OMEPRAZOLE. [Concomitant]
     Active Substance: OMEPRAZOLE
     Dosage: 40 MG, 1X/DAY
  3. VITAMIN D [Concomitant]
     Active Substance: CHOLECALCIFEROL
     Dosage: 1000 IU, 1X/DAY
  4. OMEGA 3 [Concomitant]
     Active Substance: OMEGA-3 FATTY ACIDS
     Dosage: 1200 MG, 1X/DAY
  5. MELATONIN [Concomitant]
     Active Substance: MELATONIN
     Dosage: 3 MG, AS NEEDED (AT BEDTIME AS NEEDED WITH FOOD ONCE A DAY)
  6. TORSEMIDE. [Concomitant]
     Active Substance: TORSEMIDE
     Dosage: 20 MG, 1X/DAY
  7. TIKOSYN [Suspect]
     Active Substance: DOFETILIDE
     Indication: ATRIAL FIBRILLATION
     Dosage: 250 UG, 2X/DAY
     Route: 048
  8. WARFARIN SODIUM. [Concomitant]
     Active Substance: WARFARIN SODIUM
     Dosage: 2 MG, DAILY
  9. LATANOPROST. [Concomitant]
     Active Substance: LATANOPROST
     Dosage: 1 GTT, 1X/DAY (1 DROP INTO AFFECTED EYE IN THE EVENING ONCE A DAY)
     Route: 047
  10. POTASSIUM CHLORIDE. [Concomitant]
     Active Substance: POTASSIUM CHLORIDE
     Dosage: 10 MEQ, DAILY
  11. SIMVASTATIN. [Concomitant]
     Active Substance: SIMVASTATIN
     Dosage: 10 MG, 1X/DAY (1 TABLET IN THE EVENING ONCE A DAY)

REACTIONS (1)
  - Anxiety [Unknown]
